FAERS Safety Report 25935786 (Version 2)
Quarter: 2025Q4

REPORT INFORMATION
  Report Type: Spontaneous
  Country: JP (occurrence: JP)
  Receive Date: 20251017
  Receipt Date: 20251207
  Transmission Date: 20260118
  Serious: Yes (Other)
  Sender: AMGEN
  Company Number: JP-KYOWAKIRIN-2025KK019805

PATIENT
  Age: 8 Decade
  Sex: Male

DRUGS (1)
  1. ROMIPLOSTIM [Suspect]
     Active Substance: ROMIPLOSTIM
     Indication: Product used for unknown indication
     Dosage: 20 MICROGRAM
     Route: 058
     Dates: start: 202504

REACTIONS (2)
  - Cerebral haemorrhage [Unknown]
  - Drug ineffective [Unknown]
